FAERS Safety Report 17564730 (Version 1)
Quarter: 2020Q1

REPORT INFORMATION
  Report Type: Spontaneous
  Country: US (occurrence: US)
  Receive Date: 20200320
  Receipt Date: 20200320
  Transmission Date: 20200409
  Serious: No
  Sender: FDA-Public Use
  Company Number: NVSC2020US074370

PATIENT
  Sex: Female

DRUGS (2)
  1. XIIDRA [Suspect]
     Active Substance: LIFITEGRAST
     Indication: PRODUCT USED FOR UNKNOWN INDICATION
     Dosage: 1 GTT, BID (EYE DROPS IN A DROPERETTE, OU)
     Route: 047
  2. PAZEO [Suspect]
     Active Substance: OLOPATADINE HYDROCHLORIDE
     Indication: PRURITUS
     Dosage: 1 GTT, (OU, QAM, PRN DISP: 1 BOTTLE REFILL: 6)
     Route: 047

REACTIONS (3)
  - Intraocular pressure test abnormal [Unknown]
  - Hypersensitivity [Unknown]
  - Floppy eyelid syndrome [Unknown]
